FAERS Safety Report 8014167-X (Version None)
Quarter: 2011Q4

REPORT INFORMATION
  Report Type: 
  Country: None (occurrence: None)
  Receive Date: 20111229
  Receipt Date: 20111220
  Transmission Date: 20120403
  Serious: Yes (Hospitalization)
  Sender: FDA-Public Use
  Company Number: NL-ASTRAZENECA-2011SE77213

PATIENT
  Age: 88 Year
  Sex: Male
  Weight: 72 kg

DRUGS (6)
  1. METFORMIN HCL [Concomitant]
     Route: 048
  2. THYRAX DUOTAB [Concomitant]
     Route: 048
  3. ENALAPRIL MALEATE [Concomitant]
     Route: 048
  4. OMEPRAZOLE [Suspect]
     Indication: DYSPEPSIA
     Route: 048
     Dates: start: 20000101, end: 20110618
  5. JANUVIA [Suspect]
     Indication: DIABETES MELLITUS
     Route: 048
     Dates: start: 20110101, end: 20110618
  6. GLIMEPIRIDE [Concomitant]
     Route: 048

REACTIONS (1)
  - TUBULOINTERSTITIAL NEPHRITIS [None]
